FAERS Safety Report 23804575 (Version 1)
Quarter: 2024Q2

REPORT INFORMATION
  Report Type: Spontaneous
  Country: US (occurrence: None)
  Receive Date: 20240501
  Receipt Date: 20240501
  Transmission Date: 20240716
  Serious: Yes (Hospitalization)
  Sender: FDA-Public Use
  Company Number: None

PATIENT
  Age: 67 Year
  Sex: Male
  Weight: 127 kg

DRUGS (2)
  1. GUAIFENESIN [Suspect]
     Active Substance: GUAIFENESIN
     Indication: COVID-19
     Dosage: 2 TAB BID PO
     Dates: start: 20221130, end: 20221210
  2. FINASTERIDE [Suspect]
     Active Substance: FINASTERIDE
     Indication: Benign prostatic hyperplasia
     Dosage: 1 TAB EVERY DAY PO?
     Route: 048
     Dates: start: 20221028

REACTIONS (3)
  - Dizziness [None]
  - Tremor [None]
  - Tremor [None]

NARRATIVE: CASE EVENT DATE: 20221212
